FAERS Safety Report 25939949 (Version 2)
Quarter: 2025Q4

REPORT INFORMATION
  Report Type: Spontaneous
  Country: US (occurrence: US)
  Receive Date: 20251020
  Receipt Date: 20251110
  Transmission Date: 20260118
  Serious: Yes (Other)
  Sender: LUPIN
  Company Number: US-LUPIN PHARMACEUTICALS INC.-2025-09380

PATIENT
  Age: 63 Year
  Weight: 68.481 kg

DRUGS (4)
  1. LEVALBUTEROL TARTRATE [Suspect]
     Active Substance: LEVALBUTEROL TARTRATE
     Indication: Pulmonary fibrosis
     Dosage: BID (2 PUFFS)
  2. ALBUTEROL [Concomitant]
     Active Substance: ALBUTEROL
     Indication: Pulmonary fibrosis
     Dosage: UNK
  3. MYCOPHENOLIC ACID [Concomitant]
     Active Substance: MYCOPHENOLIC ACID
     Indication: Immunosuppressant drug therapy
     Dosage: UNK
     Route: 065
  4. OMEPRAZOLE [Concomitant]
     Active Substance: OMEPRAZOLE
     Indication: Product used for unknown indication
     Dosage: UNK
     Route: 065

REACTIONS (2)
  - Pulmonary fibrosis [Not Recovered/Not Resolved]
  - Cough [Unknown]
